FAERS Safety Report 8004022-3 (Version None)
Quarter: 2011Q4

REPORT INFORMATION
  Report Type: 
  Country: None (occurrence: None)
  Receive Date: 20111222
  Receipt Date: 20111213
  Transmission Date: 20120403
  Serious: Yes (Hospitalization, Other)
  Sender: FDA-Public Use
  Company Number: US-MERCK-1105USA02745

PATIENT
  Age: 60 Year
  Sex: Female
  Weight: 66 kg

DRUGS (2)
  1. FOSAMAX [Suspect]
     Indication: OSTEOPENIA
     Route: 048
     Dates: start: 20021201, end: 20080301
  2. ALENDRONATE SODIUM [Suspect]
     Indication: OSTEOPENIA
     Route: 048
     Dates: start: 20081001, end: 20090701

REACTIONS (24)
  - DECREASED APPETITE [None]
  - ABDOMINAL PAIN [None]
  - BLOOD IRON DECREASED [None]
  - TOOTH DISORDER [None]
  - NECK PAIN [None]
  - MUSCLE SPASMS [None]
  - LOW TURNOVER OSTEOPATHY [None]
  - ILIOTIBIAL BAND SYNDROME [None]
  - JOINT CONTRACTURE [None]
  - HYPERLIPIDAEMIA [None]
  - PULPITIS DENTAL [None]
  - FEMUR FRACTURE [None]
  - ACUTE RESPIRATORY FAILURE [None]
  - OSTEOARTHRITIS [None]
  - POST PROCEDURAL COMPLICATION [None]
  - GASTRITIS [None]
  - GASTROOESOPHAGEAL REFLUX DISEASE [None]
  - FOREIGN BODY [None]
  - FALL [None]
  - MICTURITION URGENCY [None]
  - WEIGHT DECREASED [None]
  - TOOTH FRACTURE [None]
  - GINGIVAL DISORDER [None]
  - ORTHOSTATIC HYPOTENSION [None]
